FAERS Safety Report 4816147-1 (Version None)
Quarter: 2005Q4

REPORT INFORMATION
  Report Type: 
  Country: None (occurrence: None)
  Receive Date: 20051026
  Receipt Date: 20051012
  Transmission Date: 20060501
  Serious: Yes (Death)
  Sender: FDA-Public Use
  Company Number: 2005SP003498

PATIENT
  Age: 42 Year
  Sex: Male

DRUGS (4)
  1. LUNESTA [Suspect]
     Indication: INSOMNIA
     Dosage: 90 MG; HS; ORAL
     Route: 048
     Dates: start: 20051001, end: 20051001
  2. ATIVAN [Concomitant]
  3. ZOLOFT [Concomitant]
  4. MUSCLE RELAXANTS [Concomitant]

REACTIONS (6)
  - ALCOHOL USE [None]
  - COMPLETED SUICIDE [None]
  - DRUG ABUSER [None]
  - ECONOMIC PROBLEM [None]
  - MULTIPLE DRUG OVERDOSE INTENTIONAL [None]
  - STRESS [None]
